FAERS Safety Report 8891198 (Version 1)
Quarter: 2012Q4

REPORT INFORMATION
  Report Type: 
  Country: US (occurrence: US)
  Receive Date: 20121107
  Receipt Date: 20121107
  Transmission Date: 20130627
  Serious: No
  Sender: FDA-Public Use
  Company Number: US-PFIZER INC-2012276671

PATIENT
  Age: 59 Year
  Sex: Female
  Weight: 84.81 kg

DRUGS (5)
  1. NEURONTIN [Suspect]
     Indication: RHEUMATOID ARTHRITIS
     Dosage: UNK
     Dates: start: 2008, end: 2008
  2. LASIX [Concomitant]
     Indication: PULMONARY HYPERTENSION
     Dosage: 30 mg, 1x/day in the morning
  3. ALDACTONE [Concomitant]
     Indication: PULMONARY HYPERTENSION
     Dosage: 50 mg, daily
  4. COREG [Concomitant]
     Indication: HEART RATE IRREGULAR
     Dosage: 6.25 mg, 2x/day
  5. WARFARIN SODIUM [Concomitant]
     Indication: PULMONARY THROMBOSIS
     Dosage: 4 mg, daily at night

REACTIONS (1)
  - Drug ineffective [Unknown]
